FAERS Safety Report 8509281-6 (Version None)
Quarter: 2012Q3

REPORT INFORMATION
  Report Type: 
  Country: None (occurrence: None)
  Receive Date: 20120713
  Receipt Date: 20120629
  Transmission Date: 20120928
  Serious: Yes (Hospitalization)
  Sender: FDA-Public Use
  Company Number: LT-ROCHE-1084154

PATIENT
  Sex: Male

DRUGS (5)
  1. WARFARIN SODIUM [Suspect]
     Indication: CHRONIC LYMPHOCYTIC LEUKAEMIA
     Route: 048
     Dates: start: 20060101, end: 20120611
  2. SULFAMETHOXAZOLE AND TRIMETHOPRIM [Concomitant]
  3. MABTHERA [Suspect]
     Indication: LYMPHOCYTIC LEUKAEMIA
     Dates: start: 20120608, end: 20120610
  4. METHYLPREDNISOLONE [Suspect]
     Indication: LYMPHOCYTIC LEUKAEMIA
     Dates: start: 20120608, end: 20120610
  5. LEVOTYROXIN [Concomitant]

REACTIONS (2)
  - OVERDOSE [None]
  - HAEMORRHAGIC DIATHESIS [None]
